FAERS Safety Report 8082011-0 (Version None)
Quarter: 2012Q1

REPORT INFORMATION
  Report Type: 
  Country: None (occurrence: None)
  Receive Date: 20120130
  Receipt Date: 20120121
  Transmission Date: 20120608
  Serious: Yes (Other)
  Sender: FDA-Public Use
  Company Number: PHHY2012US006040

PATIENT
  Age: 69 Year
  Sex: Male

DRUGS (3)
  1. LEVOFLOXACIN [Concomitant]
     Dosage: 750 MG, UNK
     Route: 048
  2. DAPTOMYCIN [Interacting]
  3. SIMVASTATIN [Suspect]
     Dosage: 40 MG/DAY

REACTIONS (2)
  - DRUG INTERACTION [None]
  - RHABDOMYOLYSIS [None]
